FAERS Safety Report 6532798-0 (Version None)
Quarter: 2010Q1

REPORT INFORMATION
  Report Type: 
  Country: None (occurrence: None)
  Receive Date: 20100111
  Receipt Date: 20100107
  Transmission Date: 20100710
  Serious: Yes (Death, Other)
  Sender: FDA-Public Use
  Company Number: PHHY2010JP00877

PATIENT
  Age: 91 Year
  Sex: Male

DRUGS (3)
  1. NEORAL [Suspect]
     Indication: NEPHROTIC SYNDROME
     Dosage: 75 MG DAILY
     Route: 048
  2. PREDONINE [Concomitant]
     Dosage: 10 MG, UNK
     Route: 048
  3. INSULIN [Concomitant]

REACTIONS (2)
  - CONDITION AGGRAVATED [None]
  - PNEUMONIA [None]
